FAERS Safety Report 26061093 (Version 2)
Quarter: 2025Q4

REPORT INFORMATION
  Report Type: Spontaneous
  Country: EU (occurrence: EU)
  Receive Date: 20251118
  Receipt Date: 20251126
  Transmission Date: 20260119
  Serious: Yes (Other)
  Sender: ELI LILLY AND COMPANY
  Company Number: EU-ELI_LILLY_AND_COMPANY-DE202511007554

PATIENT
  Age: 71 Year
  Sex: Female

DRUGS (4)
  1. CYMBALTA [Suspect]
     Active Substance: DULOXETINE HYDROCHLORIDE
     Indication: Restlessness
     Dosage: UNK, UNKNOWN
     Route: 065
     Dates: start: 2022
  2. CYMBALTA [Suspect]
     Active Substance: DULOXETINE HYDROCHLORIDE
     Indication: Anxiety
     Dosage: 30 MG, UNKNOWN
     Route: 065
     Dates: start: 202510
  3. CYMBALTA [Suspect]
     Active Substance: DULOXETINE HYDROCHLORIDE
     Dosage: 30 MG, UNKNOWN
     Route: 065
  4. LEVOTHYROXINE [Concomitant]
     Active Substance: LEVOTHYROXINE
     Indication: Product used for unknown indication
     Dosage: UNK, UNKNOWN
     Route: 065

REACTIONS (14)
  - Breast cancer [Unknown]
  - Polyneuropathy [Unknown]
  - Mood swings [Not Recovered/Not Resolved]
  - Panic attack [Unknown]
  - Feeding disorder [Unknown]
  - Drug intolerance [Unknown]
  - Nervousness [Not Recovered/Not Resolved]
  - Restlessness [Not Recovered/Not Resolved]
  - Disorientation [Unknown]
  - Decreased appetite [Recovering/Resolving]
  - Insomnia [Unknown]
  - Tinnitus [Not Recovered/Not Resolved]
  - Constipation [Unknown]
  - Drug ineffective [Unknown]

NARRATIVE: CASE EVENT DATE: 20220101
